FAERS Safety Report 8792752 (Version 2)
Quarter: 2012Q4

REPORT INFORMATION
  Report Type: Report from Study
  Country: JP (occurrence: JP)
  Receive Date: 20120918
  Receipt Date: 20121029
  Transmission Date: 20130627
  Serious: Yes (Other)
  Sender: FDA-Public Use
  Company Number: JP-VERTEX PHARMACEUTICAL INC.-2012-021040

PATIENT
  Age: 63 Year
  Sex: Female

DRUGS (13)
  1. VX-950 [Suspect]
     Indication: HEPATITIS C
     Dosage: 1500 mg, qd
     Route: 048
     Dates: start: 20120718, end: 20120802
  2. VX-950 [Suspect]
     Dosage: 1500 mg, qd
     Route: 048
     Dates: start: 20120809, end: 20120913
  3. VX-950 [Suspect]
     Dosage: 1000 mg, qd
     Route: 048
     Dates: start: 20120914, end: 20120927
  4. VX-950 [Suspect]
     Dosage: 750 mg, qd
     Route: 048
     Dates: start: 20120928, end: 20121004
  5. RIBAVIRIN [Suspect]
     Indication: HEPATITIS C
     Dosage: 400 mg, qd
     Route: 048
     Dates: start: 20120718, end: 20120802
  6. RIBAVIRIN [Suspect]
     Dosage: 400 mg, qd
     Route: 048
     Dates: start: 20120809, end: 20120905
  7. RIBAVIRIN [Suspect]
     Dosage: 200 mg, qd
     Route: 048
     Dates: start: 20120906, end: 20121004
  8. RIBAVIRIN [Suspect]
     Dosage: 200 mg, qd
     Route: 048
     Dates: start: 20121018
  9. PEGINTERFERON ALFA-2B [Suspect]
     Indication: HEPATITIS C
     Dosage: 1.5 �g/kg, UNK
     Route: 058
     Dates: start: 20120718, end: 20120726
  10. PEGINTERFERON ALFA-2B [Suspect]
     Dosage: 1.5 �g/kg, UNK
     Route: 058
     Dates: start: 20120809, end: 20120927
  11. PEGINTERFERON ALFA-2B [Suspect]
     Dosage: 1.5 �g/kg, UNK
     Route: 058
     Dates: start: 20121018
  12. URSO                               /00465701/ [Concomitant]
     Dosage: 600 mg, UNK
     Route: 048
     Dates: end: 20120906
  13. DEPAS [Concomitant]
     Dosage: 1 mg, qd
     Route: 048

REACTIONS (3)
  - Blood creatinine increased [Not Recovered/Not Resolved]
  - Hyperuricaemia [Not Recovered/Not Resolved]
  - Anaemia [Not Recovered/Not Resolved]
